FAERS Safety Report 4840055-3 (Version None)
Quarter: 2005Q4

REPORT INFORMATION
  Report Type: 
  Country: None (occurrence: None)
  Receive Date: 20051125
  Receipt Date: 20051115
  Transmission Date: 20060501
  Serious: Yes (Life-Threatening, Hospitalization)
  Sender: FDA-Public Use
  Company Number: 2005JP002171

PATIENT
  Age: 31 Year
  Sex: Female

DRUGS (4)
  1. PROGRAF [Suspect]
     Indication: BONE MARROW TRANSPLANT
     Dates: start: 19980101
  2. STEROID [Concomitant]
  3. BASILIXIMAB (BASILIXIMAB) [Concomitant]
  4. MYCOPHENOLATE MOFETIL (MYCOPHENOLATE MOFETIL) [Concomitant]

REACTIONS (5)
  - LUNG TRANSPLANT [None]
  - OBLITERATIVE BRONCHIOLITIS [None]
  - PNEUMATOSIS INTESTINALIS [None]
  - PNEUMOMEDIASTINUM [None]
  - RESPIRATORY FAILURE [None]
